FAERS Safety Report 6166999-0 (Version None)
Quarter: 2009Q2

REPORT INFORMATION
  Report Type: 
  Country: None (occurrence: None)
  Receive Date: 20090424
  Receipt Date: 20090414
  Transmission Date: 20091009
  Serious: Yes (Hospitalization, Other)
  Sender: FDA-Public Use
  Company Number: US-ABBOTT-09P-163-0568302-00

PATIENT
  Sex: Female

DRUGS (16)
  1. TRICOR [Suspect]
     Indication: DYSLIPIDAEMIA
     Dates: start: 20050101
  2. TRICOR [Suspect]
     Indication: CHEST PAIN
     Dates: start: 20041201, end: 20050101
  3. TRICOR [Suspect]
     Dates: start: 20040301, end: 20041201
  4. ZOLOFT [Suspect]
     Indication: DRUG USE FOR UNKNOWN INDICATION
  5. ALLEGRA [Concomitant]
     Indication: DRUG USE FOR UNKNOWN INDICATION
  6. ALPHA LIPOIC ACID R [Concomitant]
     Indication: DRUG USE FOR UNKNOWN INDICATION
  7. ASPIRIN [Concomitant]
     Indication: CHEST PAIN
  8. ASPIRIN [Concomitant]
     Indication: HYPERLIPIDAEMIA
  9. CARDIOTEK RX VITAMIN B COMPLEX WITH FOLIC ACID [Concomitant]
     Indication: CHEST PAIN
  10. CARDIOTEK RX VITAMIN B COMPLEX WITH FOLIC ACID [Concomitant]
     Indication: HYPERLIPIDAEMIA
  11. FISH OIL [Concomitant]
     Indication: CHEST PAIN
     Route: 048
  12. FISH OIL [Concomitant]
     Indication: HYPERLIPIDAEMIA
  13. FLAXSEED OIL [Concomitant]
     Indication: DRUG USE FOR UNKNOWN INDICATION
     Route: 048
  14. PLAVIX [Concomitant]
     Indication: CHEST PAIN
  15. PLAVIX [Concomitant]
     Indication: HYPERLIPIDAEMIA
  16. VALIUM [Concomitant]
     Indication: DRUG USE FOR UNKNOWN INDICATION

REACTIONS (8)
  - ADVERSE DRUG REACTION [None]
  - AUTOIMMUNE HEPATITIS [None]
  - FIBROSIS [None]
  - HEPATIC NECROSIS [None]
  - HEPATITIS [None]
  - HEPATOCELLULAR INJURY [None]
  - MALAISE [None]
  - PLASMA CELLS INCREASED [None]
